FAERS Safety Report 7578850-2 (Version None)
Quarter: 2011Q2

REPORT INFORMATION
  Report Type: 
  Country: None (occurrence: None)
  Receive Date: 20110628
  Receipt Date: 20110616
  Transmission Date: 20111010
  Serious: Yes (Other)
  Sender: FDA-Public Use
  Company Number: FR-UCBSA-034268

PATIENT
  Sex: Male
  Weight: 60 kg

DRUGS (6)
  1. EDEX [Suspect]
     Route: 017
     Dates: start: 20100517, end: 20110521
  2. AMLODIPINE [Concomitant]
     Indication: HYPERTENSION
     Dates: start: 20091203
  3. ACTOS [Concomitant]
     Indication: DIABETES MELLITUS
     Dates: start: 20071127
  4. AMARYL [Concomitant]
     Indication: DIABETES MELLITUS
     Dates: start: 20060808
  5. LEVOTHYROXINE SODIUM [Concomitant]
     Indication: THYROID DISORDER
     Dates: start: 20091203
  6. EDEX [Suspect]
     Indication: ERECTILE DYSFUNCTION
     Route: 017
     Dates: end: 20100501

REACTIONS (3)
  - PAIN IN EXTREMITY [None]
  - DRUG INEFFECTIVE [None]
  - MONOPLEGIA [None]
